FAERS Safety Report 19465785 (Version 2)
Quarter: 2021Q2

REPORT INFORMATION
  Report Type: Spontaneous
  Country: GB (occurrence: GB)
  Receive Date: 20210626
  Receipt Date: 20210626
  Transmission Date: 20210717
  Serious: Yes (Death, Other)
  Sender: FDA-Public Use
  Company Number: GB-TEVA-2021-GB-1925024

PATIENT
  Age: 21 Year
  Sex: Female
  Weight: 63.5 kg

DRUGS (5)
  1. TRAZODONE HYDROCHLORIDE. [Suspect]
     Active Substance: TRAZODONE HYDROCHLORIDE
     Indication: AFFECTIVE DISORDER
     Dosage: 225 MILLIGRAM DAILY; AT NIGHT
     Route: 048
  2. QUETIAPINE. [Concomitant]
     Active Substance: QUETIAPINE
     Dosage: 200 MG
  3. MELATONIN [Concomitant]
     Active Substance: MELATONIN
     Dosage: 2 MG
  4. TRAZODONE HYDROCHLORIDE. [Suspect]
     Active Substance: TRAZODONE HYDROCHLORIDE
     Dosage: 150 MILLIGRAM DAILY; IN MORNING
     Route: 048
  5. DESOGESTREL [Concomitant]
     Active Substance: DESOGESTREL
     Dosage: 75 MICROGRAM

REACTIONS (1)
  - Completed suicide [Fatal]

NARRATIVE: CASE EVENT DATE: 20200621
